FAERS Safety Report 8913576 (Version 1)
Quarter: 2012Q4

REPORT INFORMATION
  Report Type: Spontaneous
  Country: US (occurrence: None)
  Receive Date: 20121114
  Receipt Date: 20121114
  Transmission Date: 20130627
  Serious: Yes (Other)
  Sender: FDA-Public Use
  Company Number: FK201203282

PATIENT
  Age: 7 Month
  Sex: Female

DRUGS (3)
  1. METHYLPREDNISOLONE [Suspect]
     Indication: KAWASAKI^S DISEASE
     Dosage: 30 mg/kg, intravenous
     Route: 042
  2. METHYLPREDNISOLONE [Suspect]
     Indication: KAWASAKI^S DISEASE
     Dosage: 5 mg/kg/day, intravenous
     Route: 042
  3. CYCLOSPORIN [Concomitant]

REACTIONS (3)
  - Pneumatosis intestinalis [None]
  - Hypertension [None]
  - Gastrointestinal haemorrhage [None]
